FAERS Safety Report 8942886 (Version 1)
Quarter: 2012Q4

REPORT INFORMATION
  Report Type: Spontaneous
  Country: JP (occurrence: None)
  Receive Date: 20121123
  Receipt Date: 20121123
  Transmission Date: 20130627
  Serious: Yes (Life-Threatening)
  Sender: FDA-Public Use
  Company Number: 2012P1064933

PATIENT
  Age: 12 Year
  Sex: Male

DRUGS (1)
  1. FENTANYL (NO PREF. NAME) [Suspect]
     Indication: DRUG USE FOR UNKNOWN INDICATION

REACTIONS (1)
  - Anaphylactic reaction [None]
